FAERS Safety Report 21436681 (Version 5)
Quarter: 2024Q2

REPORT INFORMATION
  Report Type: Report from Study
  Country: US (occurrence: US)
  Receive Date: 20221010
  Receipt Date: 20240423
  Transmission Date: 20240716
  Serious: Yes (Hospitalization, Other)
  Sender: FDA-Public Use
  Company Number: US-BoehringerIngelheim-2022-BI-172220

PATIENT
  Age: 57 Year
  Sex: Female

DRUGS (3)
  1. OFEV [Suspect]
     Active Substance: NINTEDANIB
     Indication: Pulmonary fibrosis
     Route: 048
     Dates: start: 202205
  2. OFEV [Suspect]
     Active Substance: NINTEDANIB
     Indication: Interstitial lung disease
     Route: 048
     Dates: start: 20220523
  3. OFEV [Suspect]
     Active Substance: NINTEDANIB
     Route: 048
     Dates: end: 20221226

REACTIONS (15)
  - Pneumonia [Recovered/Resolved]
  - Obstructive airways disorder [Not Recovered/Not Resolved]
  - Pulmonary thrombosis [Unknown]
  - COVID-19 [Unknown]
  - Cough [Not Recovered/Not Resolved]
  - Vomiting [Recovered/Resolved]
  - Nausea [Recovered/Resolved]
  - Arthropod bite [Unknown]
  - Skin irritation [Unknown]
  - Abdominal discomfort [Recovering/Resolving]
  - Diarrhoea [Recovered/Resolved]
  - Dizziness [Recovered/Resolved]
  - Visual impairment [Unknown]
  - Diarrhoea [Unknown]
  - Gastrointestinal pain [Unknown]

NARRATIVE: CASE EVENT DATE: 20230412
